FAERS Safety Report 19918417 (Version 1)
Quarter: 2021Q4

REPORT INFORMATION
  Report Type: Spontaneous
  Country: CN (occurrence: CN)
  Receive Date: 20211004
  Receipt Date: 20211004
  Transmission Date: 20220304
  Serious: Yes (Other)
  Sender: FDA-Public Use
  Company Number: CN-NAPPMUNDI-GBR-2021-0090947

PATIENT
  Age: 66 Year
  Sex: Female
  Weight: 28 kg

DRUGS (2)
  1. MS CONTIN [Suspect]
     Active Substance: MORPHINE SULFATE
     Indication: Cancer pain
     Dosage: 10 MG, Q12H
     Route: 048
     Dates: start: 20210914, end: 20210916
  2. PACLITAXEL [Suspect]
     Active Substance: PACLITAXEL
     Indication: Gastric cancer
     Dosage: 0.1 G, DAILY
     Route: 041
     Dates: start: 20210904, end: 20210912

REACTIONS (8)
  - Pyrexia [Recovering/Resolving]
  - Supraventricular tachycardia [Recovering/Resolving]
  - Electrocardiogram ST segment depression [Recovering/Resolving]
  - Myelosuppression [Recovering/Resolving]
  - Agranulocytosis [Recovering/Resolving]
  - Lethargy [Recovering/Resolving]
  - Mental impairment [Recovering/Resolving]
  - Somnolence [Recovering/Resolving]

NARRATIVE: CASE EVENT DATE: 20210915
